FAERS Safety Report 8559260-8 (Version None)
Quarter: 2012Q3

REPORT INFORMATION
  Report Type: 
  Country: None (occurrence: None)
  Receive Date: 20120720
  Receipt Date: 20120706
  Transmission Date: 20120928
  Serious: Yes (Hospitalization, Disabling)
  Sender: FDA-Public Use
  Company Number: 217530

PATIENT
  Age: 24 Year
  Sex: Male

DRUGS (2)
  1. CALCIPOTRIENE [Suspect]
     Indication: PSORIASIS
     Dosage: TOPICAL
     Route: 061
     Dates: start: 20120228, end: 20120323
  2. CLOBETASOL PROPIONATE [Suspect]
     Indication: PSORIASIS
     Dosage: TOPICAL
     Route: 061
     Dates: start: 20120228, end: 20120323

REACTIONS (7)
  - BLOOD PARATHYROID HORMONE DECREASED [None]
  - HEADACHE [None]
  - BENIGN INTRACRANIAL HYPERTENSION [None]
  - VISUAL ACUITY REDUCED [None]
  - PAPILLOEDEMA [None]
  - MYDRIASIS [None]
  - POST LUMBAR PUNCTURE SYNDROME [None]
